FAERS Safety Report 24196580 (Version 1)
Quarter: 2024Q3

REPORT INFORMATION
  Report Type: Other
  Country: FR (occurrence: FR)
  Receive Date: 20240810
  Receipt Date: 20240810
  Transmission Date: 20241016
  Serious: Yes (Hospitalization)
  Sender: ZYDUS PHARM
  Company Number: None

PATIENT

DRUGS (2)
  1. ACETAMINOPHEN [Suspect]
     Active Substance: ACETAMINOPHEN
     Indication: Intentional overdose
     Dosage: 32 DOSAGE FORM, 1 TOTAL
     Route: 048
     Dates: start: 20240703, end: 20240703
  2. ACETAMINOPHEN [Suspect]
     Active Substance: ACETAMINOPHEN
     Dosage: 16 DOSAGE FORM, 1 TOTAL
     Route: 048
     Dates: start: 20240705, end: 20240705

REACTIONS (4)
  - Abdominal pain [Recovering/Resolving]
  - Poisoning deliberate [Recovered/Resolved]
  - Nausea [Recovered/Resolved]
  - Vomiting [Recovered/Resolved]

NARRATIVE: CASE EVENT DATE: 20240703
